FAERS Safety Report 5722931-2 (Version None)
Quarter: 2008Q2

REPORT INFORMATION
  Report Type: 
  Country: None (occurrence: None)
  Receive Date: 20080425
  Receipt Date: 20080417
  Transmission Date: 20081010
  Serious: Yes (Other)
  Sender: FDA-Public Use
  Company Number: 2008BI000198

PATIENT
  Age: 50 Year
  Sex: Female

DRUGS (1)
  1. AVONEX [Suspect]
     Indication: MULTIPLE SCLEROSIS
     Dosage: 30 UG; QW;  IM
     Route: 030
     Dates: start: 20031025

REACTIONS (4)
  - LUNG CANCER METASTATIC [None]
  - METASTASES TO LYMPH NODES [None]
  - METASTASES TO PHARYNX [None]
  - METASTASES TO THORAX [None]
